FAERS Safety Report 6924459-0 (Version None)
Quarter: 2010Q3

REPORT INFORMATION
  Report Type: 
  Country: None (occurrence: None)
  Receive Date: 20100811
  Receipt Date: 20100804
  Transmission Date: 20110219
  Serious: Yes (Hospitalization)
  Sender: FDA-Public Use
  Company Number: CRC-10-089

PATIENT
  Age: 62 Year
  Sex: Female
  Weight: 66.14 kg

DRUGS (10)
  1. METFORMIN HYDROCHLORIDE [Suspect]
     Indication: TYPE 2 DIABETES MELLITUS
     Dosage: 500MG, TWO TABLETS DAILY, ORAL
     Route: 048
     Dates: start: 20070101, end: 20100317
  2. METFORMIN HYDROCHLORIDE [Suspect]
     Indication: TYPE 2 DIABETES MELLITUS
     Dosage: 500MG, TWO TABLETS DAILY, ORAL
     Route: 048
     Dates: start: 20100318, end: 20100329
  3. METFORMIN HYDROCHLORIDE [Suspect]
     Indication: TYPE 2 DIABETES MELLITUS
     Dosage: 500MG, TWO TABLETS DAILY, ORAL
     Route: 048
     Dates: start: 20100413
  4. STUDY DRUG (SINGLE-BLIND PLACEBO) [Suspect]
     Indication: TYPE 2 DIABETES MELLITUS
     Dosage: ORAL
     Route: 048
     Dates: start: 20100318, end: 20100329
  5. GLIMEPIRIDE [Suspect]
     Indication: TYPE 2 DIABETES MELLITUS
     Dosage: ORAL ; 2MG, 2 IN ONE DAY; 4MG 1 IN ONE DAY
     Route: 048
     Dates: start: 20070101, end: 20100317
  6. GLIMEPIRIDE [Suspect]
     Indication: TYPE 2 DIABETES MELLITUS
     Dosage: ORAL ; 2MG, 2 IN ONE DAY; 4MG 1 IN ONE DAY
     Route: 048
     Dates: start: 20100318, end: 20100329
  7. GLIMEPIRIDE [Suspect]
     Indication: TYPE 2 DIABETES MELLITUS
     Dosage: ORAL ; 2MG, 2 IN ONE DAY; 4MG 1 IN ONE DAY
     Route: 048
     Dates: start: 20100413
  8. LISINOPRIL [Concomitant]
  9. DARVOCET N-50 (ACETAMINOPHEN/PROPOXYPHENE) TABLETS [Concomitant]
  10. LIALDA [Concomitant]

REACTIONS (13)
  - BLOOD PRESSURE INCREASED [None]
  - CHEST PAIN [None]
  - HAEMATOCRIT DECREASED [None]
  - HAEMOGLOBIN DECREASED [None]
  - MULTIPLE FRACTURES [None]
  - OCULAR HYPERAEMIA [None]
  - OSTEOARTHRITIS [None]
  - PAIN IN EXTREMITY [None]
  - RETINAL INJURY [None]
  - RIB FRACTURE [None]
  - ROAD TRAFFIC ACCIDENT [None]
  - TIBIA FRACTURE [None]
  - VISUAL ACUITY REDUCED [None]
